FAERS Safety Report 20580090 (Version 5)
Quarter: 2022Q4

REPORT INFORMATION
  Report Type: Spontaneous
  Country: JP (occurrence: JP)
  Receive Date: 20220310
  Receipt Date: 20221123
  Transmission Date: 20230113
  Serious: Yes (Other)
  Sender: FDA-Public Use
  Company Number: JP-CHUGAI-2022000047

PATIENT
  Age: 60 Year
  Sex: Female
  Weight: 36.5 kg

DRUGS (2)
  1. ENSPRYNG [Suspect]
     Active Substance: SATRALIZUMAB-MWGE
     Indication: Neuromyelitis optica spectrum disorder
     Dosage: 120 MILLIGRAM, ONCE/4WEEKS
     Route: 058
     Dates: start: 20211110, end: 202201
  2. ENSPRYNG [Suspect]
     Active Substance: SATRALIZUMAB-MWGE
     Dosage: 120 MILLIGRAM, ONCE/4WEEKS
     Route: 058
     Dates: start: 20220303

REACTIONS (5)
  - Neuromyelitis optica spectrum disorder [Not Recovered/Not Resolved]
  - Oedema [Recovered/Resolved]
  - Haemorrhage subcutaneous [Recovered/Resolved]
  - Alopecia [Recovering/Resolving]
  - Arthralgia [Unknown]

NARRATIVE: CASE EVENT DATE: 20211228
